FAERS Safety Report 6026097-3 (Version None)
Quarter: 2008Q4

REPORT INFORMATION
  Report Type: 
  Country: None (occurrence: None)
  Receive Date: 20081230
  Receipt Date: 20081212
  Transmission Date: 20090506
  Serious: Yes (Hospitalization)
  Sender: FDA-Public Use
  Company Number: WAES 0812USA03556

PATIENT

DRUGS (3)
  1. HYDRODIURIL [Suspect]
     Dosage: 12.5 MG/PO
     Route: 048
  2. TAB PLACEBO (UNSPECIFIED) UNK [Suspect]
     Dosage: PO
     Route: 048
  3. VALSARTAN [Suspect]
     Dosage: 80 MG/PO
     Route: 048

REACTIONS (7)
  - COUGH [None]
  - DIARRHOEA [None]
  - GASTROENTERITIS [None]
  - HEPATIC ENZYME INCREASED [None]
  - HEPATITIS [None]
  - PYREXIA [None]
  - UPPER RESPIRATORY TRACT INFECTION [None]
